FAERS Safety Report 18883138 (Version 1)
Quarter: 2021Q1

REPORT INFORMATION
  Report Type: Spontaneous
  Country: US (occurrence: US)
  Receive Date: 20210212
  Receipt Date: 20210212
  Transmission Date: 20210420
  Serious: Yes (Other)
  Sender: FDA-Public Use
  Company Number: US-MICRO LABS LIMITED-ML2021-00368

PATIENT
  Age: 42 Year
  Sex: Male
  Weight: 89 kg

DRUGS (6)
  1. RECOMBINANT FACTOR VIIA [Suspect]
     Active Substance: COAGULATION FACTOR VIIA RECOMBINANT HUMAN
     Indication: HAEMOSTASIS
  2. PROTAMINE SULFATE. [Suspect]
     Active Substance: PROTAMINE SULFATE
     Indication: HAEMOSTASIS
  3. FIBRINOGEN [Suspect]
     Active Substance: FIBRINOGEN HUMAN
     Indication: HAEMOSTASIS
  4. THROMBIN [Suspect]
     Active Substance: THROMBIN
     Indication: HAEMOSTASIS
  5. TRANEXAMIC ACID. [Suspect]
     Active Substance: TRANEXAMIC ACID
     Indication: HAEMOSTASIS
  6. PROTHROMBIN COMPLEX CONCENTRATE NOS [Suspect]
     Active Substance: COAGULATION FACTOR IX HUMAN\COAGULATION FACTOR VII HUMAN\COAGULATION FACTOR X HUMAN\PROTHROMBIN
     Indication: HAEMOSTASIS

REACTIONS (2)
  - Liver injury [Unknown]
  - Acute kidney injury [Unknown]
